FAERS Safety Report 26041104 (Version 1)
Quarter: 2025Q4

REPORT INFORMATION
  Report Type: Report from Study
  Country: CN (occurrence: CN)
  Receive Date: 20251113
  Receipt Date: 20251113
  Transmission Date: 20260118
  Serious: Yes (Other)
  Sender: ROCHE
  Company Number: CN-ROCHE-10000236373

PATIENT
  Age: 41 Year
  Sex: Female
  Weight: 80 kg

DRUGS (66)
  1. KADCYLA [Suspect]
     Active Substance: ADO-TRASTUZUMAB EMTANSINE
     Indication: Breast cancer metastatic
     Dosage: MOST RECENT DOSE OF MEDICINAL PRODUCT WAS ADMINISTERED ON: 17-DEC-2024, 18-DEC-2024 15 JAN 2025
     Route: 042
     Dates: start: 20240525
  2. Leuprorelin Acetate Microspheres for Injection [Concomitant]
     Route: 058
     Dates: start: 20240718, end: 20240718
  3. Leuprorelin Acetate Microspheres for Injection [Concomitant]
     Route: 058
     Dates: start: 20240907, end: 20240907
  4. Leuprorelin Acetate Microspheres for Injection [Concomitant]
     Route: 058
     Dates: start: 20240930, end: 20240930
  5. Leuprorelin Acetate Microspheres for Injection [Concomitant]
     Route: 058
     Dates: start: 20241118, end: 20241118
  6. Leuprorelin Acetate Microspheres for Injection [Concomitant]
     Route: 058
     Dates: start: 20241218, end: 20241218
  7. Leuprorelin Acetate Microspheres for Injection [Concomitant]
     Route: 058
     Dates: start: 20240619, end: 20240619
  8. Leuprorelin Acetate Microspheres for Injection [Concomitant]
     Route: 058
     Dates: start: 20250115, end: 20250115
  9. Leuprorelin Acetate Microspheres for Injection [Concomitant]
     Route: 058
     Dates: start: 20250210, end: 20250210
  10. Dolasetron Mesylate Injection [Concomitant]
     Indication: Prophylaxis of nausea and vomiting
     Route: 042
     Dates: start: 20240718, end: 20240718
  11. Dolasetron Mesylate Injection [Concomitant]
     Route: 042
     Dates: start: 20240907, end: 20240907
  12. Dolasetron Mesylate Injection [Concomitant]
     Route: 042
     Dates: start: 20240929, end: 20240929
  13. Dolasetron Mesylate Injection [Concomitant]
     Route: 042
     Dates: start: 20241025, end: 20241025
  14. Dolasetron Mesylate Injection [Concomitant]
     Route: 042
     Dates: start: 20241119, end: 20241119
  15. Dolasetron Mesylate Injection [Concomitant]
     Route: 042
     Dates: start: 20241218, end: 20241218
  16. Dolasetron Mesylate Injection [Concomitant]
     Route: 042
     Dates: start: 20240619, end: 20240619
  17. Dolasetron Mesylate Injection [Concomitant]
     Route: 042
     Dates: start: 20250115, end: 20250115
  18. Dolasetron Mesylate Injection [Concomitant]
     Route: 042
     Dates: start: 20250210, end: 20250210
  19. DEXAMETHASONE SODIUM PHOSPHATE [Concomitant]
     Active Substance: DEXAMETHASONE SODIUM PHOSPHATE
     Indication: Prophylaxis of nausea and vomiting
     Route: 042
     Dates: start: 20240718, end: 20240718
  20. DEXAMETHASONE SODIUM PHOSPHATE [Concomitant]
     Active Substance: DEXAMETHASONE SODIUM PHOSPHATE
     Route: 042
     Dates: start: 20240907, end: 20240907
  21. DEXAMETHASONE SODIUM PHOSPHATE [Concomitant]
     Active Substance: DEXAMETHASONE SODIUM PHOSPHATE
     Route: 042
     Dates: start: 20240929, end: 20240929
  22. DEXAMETHASONE SODIUM PHOSPHATE [Concomitant]
     Active Substance: DEXAMETHASONE SODIUM PHOSPHATE
     Route: 042
     Dates: start: 20241025, end: 20241025
  23. DEXAMETHASONE SODIUM PHOSPHATE [Concomitant]
     Active Substance: DEXAMETHASONE SODIUM PHOSPHATE
     Route: 042
     Dates: start: 20241119, end: 20241119
  24. DEXAMETHASONE SODIUM PHOSPHATE [Concomitant]
     Active Substance: DEXAMETHASONE SODIUM PHOSPHATE
     Route: 042
     Dates: start: 20241218, end: 20241218
  25. DEXAMETHASONE SODIUM PHOSPHATE [Concomitant]
     Active Substance: DEXAMETHASONE SODIUM PHOSPHATE
     Route: 042
     Dates: start: 20240619, end: 20240619
  26. DEXAMETHASONE SODIUM PHOSPHATE [Concomitant]
     Active Substance: DEXAMETHASONE SODIUM PHOSPHATE
     Route: 042
     Dates: start: 20250115, end: 20250115
  27. DEXAMETHASONE SODIUM PHOSPHATE [Concomitant]
     Active Substance: DEXAMETHASONE SODIUM PHOSPHATE
     Route: 042
     Dates: start: 20250210, end: 20250210
  28. Amifostine for Injection [Concomitant]
     Route: 042
     Dates: start: 20240718, end: 20240718
  29. Amifostine for Injection [Concomitant]
     Route: 042
     Dates: start: 20240907, end: 20240907
  30. Amifostine for Injection [Concomitant]
     Route: 042
     Dates: start: 20240929, end: 20240929
  31. Amifostine for Injection [Concomitant]
     Route: 042
     Dates: start: 20241025, end: 20241025
  32. Amifostine for Injection [Concomitant]
     Route: 042
     Dates: start: 20241119, end: 20241119
  33. Amifostine for Injection [Concomitant]
     Route: 042
     Dates: start: 20241218, end: 20241218
  34. Amifostine for Injection [Concomitant]
     Route: 042
     Dates: start: 20240619, end: 20240619
  35. Amifostine for Injection [Concomitant]
     Route: 042
     Dates: start: 20250115, end: 20250115
  36. Amifostine for Injection [Concomitant]
     Route: 042
     Dates: start: 20250210, end: 20250210
  37. METHYLCOBALAMIN [Concomitant]
     Active Substance: METHYLCOBALAMIN
     Indication: Hypoaesthesia
     Dosage: THERAPY WAS ONGOING
     Route: 048
     Dates: start: 20240620
  38. FOSAPREPITANT DIMEGLUMINE [Concomitant]
     Active Substance: FOSAPREPITANT DIMEGLUMINE
     Indication: Prophylaxis of nausea and vomiting
     Route: 042
     Dates: start: 20240907, end: 20240907
  39. FOSAPREPITANT DIMEGLUMINE [Concomitant]
     Active Substance: FOSAPREPITANT DIMEGLUMINE
     Route: 042
     Dates: start: 20240929, end: 20240929
  40. FOSAPREPITANT DIMEGLUMINE [Concomitant]
     Active Substance: FOSAPREPITANT DIMEGLUMINE
     Route: 042
     Dates: start: 20241025, end: 20241025
  41. FOSAPREPITANT DIMEGLUMINE [Concomitant]
     Active Substance: FOSAPREPITANT DIMEGLUMINE
     Route: 042
     Dates: start: 20241119, end: 20241119
  42. FOSAPREPITANT DIMEGLUMINE [Concomitant]
     Active Substance: FOSAPREPITANT DIMEGLUMINE
     Route: 042
     Dates: start: 20241218, end: 20241218
  43. FOSAPREPITANT DIMEGLUMINE [Concomitant]
     Active Substance: FOSAPREPITANT DIMEGLUMINE
     Route: 042
     Dates: start: 20240718, end: 20240718
  44. FOSAPREPITANT DIMEGLUMINE [Concomitant]
     Active Substance: FOSAPREPITANT DIMEGLUMINE
     Route: 042
     Dates: start: 20250115, end: 20250115
  45. FOSAPREPITANT DIMEGLUMINE [Concomitant]
     Active Substance: FOSAPREPITANT DIMEGLUMINE
     Route: 042
     Dates: start: 20250210, end: 20250210
  46. DEXAMETHASONE ACETATE [Concomitant]
     Active Substance: DEXAMETHASONE ACETATE
     Dosage: DOSE: 5 TABLET
     Route: 048
     Dates: start: 20240719, end: 20240721
  47. DEXAMETHASONE ACETATE [Concomitant]
     Active Substance: DEXAMETHASONE ACETATE
     Dosage: DOSE: 8 TABLET
     Route: 048
     Dates: start: 20240907, end: 20240907
  48. DEXAMETHASONE ACETATE [Concomitant]
     Active Substance: DEXAMETHASONE ACETATE
     Dosage: DOSE: 5 TABLET
     Route: 048
     Dates: start: 20240908, end: 20240910
  49. DEXAMETHASONE ACETATE [Concomitant]
     Active Substance: DEXAMETHASONE ACETATE
     Dosage: DOSE: 8 TABLET
     Route: 048
     Dates: start: 20240929, end: 20240929
  50. DEXAMETHASONE ACETATE [Concomitant]
     Active Substance: DEXAMETHASONE ACETATE
     Dosage: DOSE: 5 TABLET
     Route: 048
     Dates: start: 20240930, end: 20241002
  51. DEXAMETHASONE ACETATE [Concomitant]
     Active Substance: DEXAMETHASONE ACETATE
     Dosage: DOSE: 8 TABLET
     Route: 048
     Dates: start: 20241025, end: 20241025
  52. DEXAMETHASONE ACETATE [Concomitant]
     Active Substance: DEXAMETHASONE ACETATE
     Dosage: DOSE: 5 TABLET
     Route: 048
     Dates: start: 20241026, end: 20241026
  53. DEXAMETHASONE ACETATE [Concomitant]
     Active Substance: DEXAMETHASONE ACETATE
     Dosage: DOSE: 8 TABLET
     Route: 048
     Dates: start: 20241119, end: 20241119
  54. DEXAMETHASONE ACETATE [Concomitant]
     Active Substance: DEXAMETHASONE ACETATE
     Dosage: DOSE: 5 TABLET
     Route: 048
     Dates: start: 20241120, end: 20241122
  55. DEXAMETHASONE ACETATE [Concomitant]
     Active Substance: DEXAMETHASONE ACETATE
     Dosage: DOSE: 8 TABLET
     Route: 048
     Dates: start: 20241218, end: 20241218
  56. DEXAMETHASONE ACETATE [Concomitant]
     Active Substance: DEXAMETHASONE ACETATE
     Dosage: DOSE: 8 TABLET
     Route: 048
     Dates: start: 20240718, end: 20240718
  57. DEXAMETHASONE ACETATE [Concomitant]
     Active Substance: DEXAMETHASONE ACETATE
     Route: 048
     Dates: start: 20250115, end: 20250115
  58. DEXAMETHASONE ACETATE [Concomitant]
     Active Substance: DEXAMETHASONE ACETATE
     Route: 048
     Dates: start: 20250116, end: 20250118
  59. DEXAMETHASONE ACETATE [Concomitant]
     Active Substance: DEXAMETHASONE ACETATE
     Route: 048
     Dates: start: 20250211, end: 20250211
  60. DEXAMETHASONE ACETATE [Concomitant]
     Active Substance: DEXAMETHASONE ACETATE
     Route: 048
     Dates: start: 20250212, end: 20250214
  61. Paracetamol and Dihydrocodeine Tartrate Tablets [Concomitant]
     Indication: Analgesic therapy
     Dosage: 1 TABLET?THERAPY WAS ONGOING
     Route: 048
     Dates: start: 20240907
  62. BICYCLOL [Concomitant]
     Active Substance: BICYCLOL
     Indication: Hepatic failure
     Route: 048
     Dates: start: 20250115
  63. LIDOCAINE HYDROCHLORIDE [Concomitant]
     Active Substance: LIDOCAINE HYDROCHLORIDE
     Route: 061
     Dates: start: 20240929, end: 20240929
  64. SHENGXUEBAO [Concomitant]
     Indication: Anaemia
     Dosage: THERAPY WAS ONGOING
     Route: 048
     Dates: start: 20250114
  65. SHENGXUEBAO [Concomitant]
     Dosage: THERAPY WAS ONGOING
     Route: 048
     Dates: end: 202410
  66. Iron Polysaccharide Complex Capsules [Concomitant]
     Indication: Anaemia
     Route: 048
     Dates: start: 20250114

REACTIONS (4)
  - Neutrophil count decreased [Recovered/Resolved]
  - White blood cell count decreased [Recovered/Resolved]
  - Hypoalbuminaemia [Not Recovered/Not Resolved]
  - Hypokalaemia [Not Recovered/Not Resolved]

NARRATIVE: CASE EVENT DATE: 20241023
